FAERS Safety Report 9845539 (Version 1)
Quarter: 2014Q1

REPORT INFORMATION
  Report Type: Spontaneous
  Country: IT (occurrence: IT)
  Receive Date: 20140127
  Receipt Date: 20140127
  Transmission Date: 20141002
  Serious: Yes (Other)
  Sender: FDA-Public Use
  Company Number: IT-TEVA-456505ISR

PATIENT
  Age: 60 Year
  Sex: Male

DRUGS (5)
  1. ALPRAZOLAM [Suspect]
     Indication: ANXIETY
     Dosage: 20 GTT TOTAL, SOLUTION
     Route: 048
     Dates: start: 20131003, end: 20131208
  2. RIVOTRIL - 2.5 MG/ML GOCCE ORALI, SOLUZIONE - ROCHE S.P.A. [Suspect]
     Indication: ANXIETY
     Dosage: 20 GTT DAILY,  SOLUTION
     Route: 048
     Dates: start: 20131003, end: 20131208
  3. ZOLOFT - 50MG CAPSULE RIGIDE [Concomitant]
     Indication: PRODUCT USED FOR UNKNOWN INDICATION
     Route: 048
  4. EFEXOR - 75 MG CAPSULE RIGIDE A RILASCIO PROLUNGATO [Concomitant]
     Indication: PRODUCT USED FOR UNKNOWN INDICATION
     Dosage: PROLONGED-RELEASE
     Route: 048
     Dates: start: 20131206, end: 20131208
  5. SAMYR - 400 MG COMPRESSE GASTRORESISTENTI [Concomitant]
     Indication: PRODUCT USED FOR UNKNOWN INDICATION
     Dosage: GASTRO-RESISTANT TABLET
     Route: 048
     Dates: start: 20131207, end: 20131207

REACTIONS (6)
  - Anxiety [Recovering/Resolving]
  - Asthenia [Recovering/Resolving]
  - Injury [Recovering/Resolving]
  - Confusional state [Recovering/Resolving]
  - Headache [Recovering/Resolving]
  - Drug abuse [Recovering/Resolving]
